FAERS Safety Report 23924412 (Version 1)
Quarter: 2024Q2

REPORT INFORMATION
  Report Type: Spontaneous
  Country: CA (occurrence: CA)
  Receive Date: 20240531
  Receipt Date: 20240531
  Transmission Date: 20240715
  Serious: Yes (Hospitalization, Other)
  Sender: FDA-Public Use
  Company Number: CA-TEVA-VS-3142559

PATIENT
  Age: 56 Year
  Sex: Female

DRUGS (10)
  1. PREDNISONE [Suspect]
     Active Substance: PREDNISONE
     Indication: Product used for unknown indication
     Route: 065
     Dates: start: 2018
  2. PREDNISONE [Suspect]
     Active Substance: PREDNISONE
     Indication: Product used for unknown indication
     Route: 048
  3. PREDNISONE [Suspect]
     Active Substance: PREDNISONE
     Indication: Product used for unknown indication
     Route: 048
  4. PREDNISONE [Suspect]
     Active Substance: PREDNISONE
     Indication: Product used for unknown indication
     Route: 065
  5. CALCIUM [Concomitant]
     Active Substance: CALCIUM
     Route: 048
  6. DILAUDID [Concomitant]
     Active Substance: HYDROMORPHONE HYDROCHLORIDE
     Indication: Pain
     Route: 048
  7. HYDROMORPHONE [Concomitant]
     Active Substance: HYDROMORPHONE
     Dosage: 3 MG CAPSULE, EXTENDED RELEASE
  8. PANTOPRAZOLE SODIUM [Concomitant]
     Active Substance: PANTOPRAZOLE SODIUM
     Dosage: STRENGTH: 40 MG EC TABLET
  9. VITAMIN D3 [Concomitant]
     Active Substance: CHOLECALCIFEROL
     Dosage: TAKE 4 TABLETS BY MOUTH 1 TIME EACH DAY
     Route: 048
  10. AMLODIPINE [Concomitant]
     Active Substance: AMLODIPINE BESYLATE
     Route: 048

REACTIONS (3)
  - Colitis ischaemic [Unknown]
  - Gastrointestinal haemorrhage [Unknown]
  - Rectal ulcer [Unknown]
